FAERS Safety Report 5988474-6 (Version None)
Quarter: 2008Q4

REPORT INFORMATION
  Report Type: 
  Country: None (occurrence: None)
  Receive Date: 20081210
  Receipt Date: 20081202
  Transmission Date: 20090506
  Serious: Yes (Other)
  Sender: FDA-Public Use
  Company Number: JP-ABBOTT-08P-087-0488039-00

PATIENT
  Age: 54 Year
  Sex: Female
  Weight: 56 kg

DRUGS (5)
  1. REMIFENTANIL [Suspect]
     Indication: GENERAL ANAESTHESIA
     Route: 065
  2. REMIFENTANIL [Suspect]
     Dosage: 0.2 MCG/KG/MIN
  3. PROPOFOL [Concomitant]
     Indication: GENERAL ANAESTHESIA
  4. PROPOFOL [Concomitant]
  5. SEVOFLURANE [Concomitant]
     Indication: GENERAL ANAESTHESIA
     Route: 065

REACTIONS (1)
  - VOCAL CORD DISORDER [None]
